FAERS Safety Report 22605213 (Version 1)
Quarter: 2023Q2

REPORT INFORMATION
  Report Type: Spontaneous
  Country: US (occurrence: US)
  Receive Date: 20230615
  Receipt Date: 20230615
  Transmission Date: 20230721
  Serious: No
  Sender: FDA-Public Use
  Company Number: US-ARBOR PHARMACEUTICALS, LLC-US-2022ARB002821

PATIENT
  Sex: Male

DRUGS (1)
  1. TESTOSTERONE CYPIONATE [Suspect]
     Active Substance: TESTOSTERONE CYPIONATE
     Indication: Product used for unknown indication
     Dosage: 0.25 ML, WEEKLY (EVERY 7 DAYS )
     Route: 030

REACTIONS (4)
  - Injection site pain [Unknown]
  - Poor quality product administered [Unknown]
  - Liquid product physical issue [Unknown]
  - Product closure issue [Unknown]
